FAERS Safety Report 6732335-1 (Version None)
Quarter: 2010Q2

REPORT INFORMATION
  Report Type: 
  Country: None (occurrence: None)
  Receive Date: 20100519
  Receipt Date: 20100511
  Transmission Date: 20101027
  Serious: Yes (Other)
  Sender: FDA-Public Use
  Company Number: US-JNJFOC-20100504195

PATIENT
  Sex: Female
  Weight: 54.43 kg

DRUGS (5)
  1. ORTHO EVRA [Suspect]
     Indication: MENSTRUAL DISORDER
     Route: 062
  2. RISPERIDONE [Suspect]
     Indication: ATTENTION DEFICIT/HYPERACTIVITY DISORDER
     Route: 048
  3. LEXAPRO [Concomitant]
     Indication: DEPRESSION
     Route: 048
  4. LEXAPRO [Concomitant]
     Indication: AFFECTIVE DISORDER
     Route: 048
  5. OTHER THERAPEUTIC PRODUCT [Concomitant]
     Indication: ANTACID THERAPY
     Route: 048

REACTIONS (10)
  - ABDOMINAL PAIN UPPER [None]
  - DIARRHOEA [None]
  - DRUG INEFFECTIVE FOR UNAPPROVED INDICATION [None]
  - FUNGAL SKIN INFECTION [None]
  - HAEMATOCHEZIA [None]
  - OFF LABEL USE [None]
  - POLYMENORRHOEA [None]
  - RASH [None]
  - URINARY TRACT INFECTION [None]
  - VOMITING [None]
